FAERS Safety Report 19097655 (Version 1)
Quarter: 2021Q2

REPORT INFORMATION
  Report Type: Spontaneous
  Country: US (occurrence: US)
  Receive Date: 20210406
  Receipt Date: 20210406
  Transmission Date: 20210717
  Serious: Yes (Hospitalization)
  Sender: FDA-Public Use
  Company Number: None

PATIENT
  Age: 61 Year
  Sex: Male

DRUGS (13)
  1. HYDROCHLOROT [Suspect]
     Active Substance: HYDROCHLOROTHIAZIDE
  2. NORCO [Suspect]
     Active Substance: ACETAMINOPHEN\HYDROCODONE BITARTRATE
  3. PRAVASTATIN. [Suspect]
     Active Substance: PRAVASTATIN
  4. XELJANZ [Suspect]
     Active Substance: TOFACITINIB CITRATE
     Indication: RHEUMATOID ARTHRITIS
     Route: 048
     Dates: start: 20190316
  5. ASPIRIN. [Suspect]
     Active Substance: ASPIRIN
  6. FOLIC ACID. [Suspect]
     Active Substance: FOLIC ACID
  7. GABAPENTIN. [Suspect]
     Active Substance: GABAPENTIN
  8. METHOTREXATE. [Suspect]
     Active Substance: METHOTREXATE
  9. AMLODIPINE [Suspect]
     Active Substance: AMLODIPINE BESYLATE
  10. MELOXICAM. [Suspect]
     Active Substance: MELOXICAM
  11. BUSPIRONE [Suspect]
     Active Substance: BUSPIRONE HYDROCHLORIDE
  12. PANTOPRAZOLE [Suspect]
     Active Substance: PANTOPRAZOLE
  13. TRAZODONE [Suspect]
     Active Substance: TRAZODONE HYDROCHLORIDE

REACTIONS (4)
  - Asthenia [None]
  - COVID-19 [None]
  - Condition aggravated [None]
  - Pneumonia [None]

NARRATIVE: CASE EVENT DATE: 20210301
